FAERS Safety Report 6142200-9 (Version None)
Quarter: 2009Q2

REPORT INFORMATION
  Report Type: 
  Country: None (occurrence: None)
  Receive Date: 20090403
  Receipt Date: 20080415
  Transmission Date: 20091009
  Serious: Yes (Hospitalization)
  Sender: FDA-Public Use
  Company Number: US-ASTRAZENECA-2008UW01151

PATIENT
  Age: 367 Month
  Sex: Female
  Weight: 114.3 kg

DRUGS (17)
  1. SEROQUEL [Suspect]
     Indication: DEPRESSION
     Dosage: 100MG-200MG
     Route: 048
     Dates: start: 20000601, end: 20030101
  2. SEROQUEL [Suspect]
     Indication: BIPOLAR DISORDER
     Dosage: 100MG-200MG
     Route: 048
     Dates: start: 20000601, end: 20030101
  3. SEROQUEL [Suspect]
     Dosage: 25MG TO 600MG
     Route: 048
     Dates: start: 20000101
  4. SEROQUEL [Suspect]
     Dosage: 25MG TO 600MG
     Route: 048
     Dates: start: 20000101
  5. ASPIRIN [Concomitant]
  6. EFFEXOR [Concomitant]
  7. GLUCOTROL XL [Concomitant]
  8. GABITRIL [Concomitant]
  9. HALOPERIDOL [Concomitant]
  10. IBUPROFEN [Concomitant]
  11. INSULIN REGULAR [Concomitant]
  12. LISINOPRIL [Concomitant]
  13. LIPITOR [Concomitant]
  14. METFORMIN HCL [Concomitant]
  15. PANTOPRAZOLE SODIUM [Concomitant]
  16. RISPERDAL [Concomitant]
  17. TRILEPTAL [Concomitant]

REACTIONS (23)
  - ABDOMINAL DISTENSION [None]
  - AFFECTIVE DISORDER [None]
  - AGITATION [None]
  - ANXIETY [None]
  - BACK PAIN [None]
  - BRONCHITIS [None]
  - CHEST PAIN [None]
  - DERMAL CYST [None]
  - DIABETES MELLITUS [None]
  - DIARRHOEA [None]
  - FURUNCLE [None]
  - HEADACHE [None]
  - NAUSEA [None]
  - NECK PAIN [None]
  - PANIC ATTACK [None]
  - PHARYNGITIS [None]
  - RASH [None]
  - RECTAL HAEMORRHAGE [None]
  - SUICIDAL IDEATION [None]
  - TONSILLITIS [None]
  - URINARY TRACT INFECTION [None]
  - VIRAL INFECTION [None]
  - WEIGHT INCREASED [None]
